FAERS Safety Report 5207226-8 (Version None)
Quarter: 2007Q1

REPORT INFORMATION
  Report Type: 
  Country: None (occurrence: None)
  Receive Date: 20070112
  Receipt Date: 20070102
  Transmission Date: 20070707
  Serious: Yes (Hospitalization)
  Sender: FDA-Public Use
  Company Number: 2007SE00010

PATIENT
  Age: 73 Year
  Sex: Male

DRUGS (9)
  1. ATACAND HCT [Suspect]
     Indication: ESSENTIAL HYPERTENSION
     Route: 048
  2. LASIX [Suspect]
     Route: 048
  3. TROMBYL 160 MG [Suspect]
     Route: 048
  4. METFORMIN [Suspect]
     Indication: DIABETES MELLITUS
     Route: 048
  5. GLIBENKLAMID RECIP 1,75 MG [Suspect]
     Indication: DIABETES MELLITUS
     Route: 048
  6. DICLOFENAC SODIUM [Suspect]
     Indication: GOUT
  7. FOLACIN 5 MG [Concomitant]
     Route: 048
  8. BEHEPAN  1 MG [Concomitant]
     Route: 048
  9. LANSOPRAZOLE [Concomitant]
     Route: 048

REACTIONS (4)
  - ANAEMIA [None]
  - BLOOD CREATININE INCREASED [None]
  - GASTROINTESTINAL HAEMORRHAGE [None]
  - SYNCOPE [None]
